FAERS Safety Report 7004759-9 (Version None)
Quarter: 2010Q3

REPORT INFORMATION
  Report Type: 
  Country: None (occurrence: None)
  Receive Date: 20100921
  Receipt Date: 20100913
  Transmission Date: 20110219
  Serious: Yes (Hospitalization)
  Sender: FDA-Public Use
  Company Number: US-TYCO HEALTHCARE/MALLINCKRODT-T201001971

PATIENT
  Age: 62 Year
  Sex: Female

DRUGS (7)
  1. EXALGO [Suspect]
     Indication: PAIN
     Dosage: 16 MG, QD
     Dates: start: 20100809
  2. EFFEXOR XR [Concomitant]
     Dosage: 37.5 MG, QD
     Route: 048
  3. TOPROL-XL [Concomitant]
     Dosage: 25 MG, QD
     Route: 048
  4. ASPIRIN [Concomitant]
     Dosage: 81 MG, QD
     Route: 048
  5. SYNTHROID [Concomitant]
     Dosage: 1.75 MG, QD
     Route: 048
  6. OXYCODONE HCL [Concomitant]
     Indication: RHEUMATOID ARTHRITIS
     Dosage: UNK
     Route: 048
     Dates: end: 20100809
  7. OXYCODONE HCL [Concomitant]
     Indication: INTERVERTEBRAL DISC DEGENERATION

REACTIONS (3)
  - MENTAL STATUS CHANGES [None]
  - MUSCLE SPASMS [None]
  - PYREXIA [None]
